FAERS Safety Report 26170802 (Version 1)
Quarter: 2025Q4

REPORT INFORMATION
  Report Type: Spontaneous
  Country: CA (occurrence: CA)
  Receive Date: 20251217
  Receipt Date: 20251217
  Transmission Date: 20260118
  Serious: Yes (Death, Life-Threatening, Hospitalization, Disabling, Congenital Anomaly, Other)
  Sender: NOVARTIS
  Company Number: CA-HALEON-2279395

PATIENT
  Age: 43 Year
  Sex: Female
  Weight: 96 kg

DRUGS (136)
  1. VOLTAREN [Suspect]
     Active Substance: DICLOFENAC SODIUM
     Indication: Product used for unknown indication
     Dosage: UNK, ROUTE:UNKNOWN
     Route: 065
  2. VOLTAREN [Suspect]
     Active Substance: DICLOFENAC SODIUM
     Dosage: UNK, ROUTE:UNKNOWN
     Route: 065
  3. VOLTAREN [Suspect]
     Active Substance: DICLOFENAC SODIUM
     Dosage: UNK, ROUTE:UNKNOWN, FORMULATION: UNKNOWN
     Route: 065
  4. VOLTAREN [Suspect]
     Active Substance: DICLOFENAC SODIUM
     Dosage: 50 MG, DOSE FORM: UNKNOWN, ROUTE: UNKNOWN
     Route: 065
  5. VOLTAREN [Suspect]
     Active Substance: DICLOFENAC SODIUM
     Dosage: 50 MG, DOSE FORM: UNKNOWN, ROUTE: UNKNOWN
     Route: 065
  6. VOLTAREN [Suspect]
     Active Substance: DICLOFENAC SODIUM
     Dosage: UNK, DOSE FORM: UNKNOWN, ROUTE: UNKNOWN
     Route: 065
  7. VOLTAREN [Suspect]
     Active Substance: DICLOFENAC SODIUM
     Dosage: UNK, ROUTE:UNKNOWN
     Route: 065
  8. VOLTAREN [Suspect]
     Active Substance: DICLOFENAC SODIUM
     Dosage: UNK, ROUTE:UNKNOWN
     Route: 065
  9. VOLTAREN [Suspect]
     Active Substance: DICLOFENAC SODIUM
     Dosage: UNK, DOSE FORM: UNKNOWN, ROUTE: UNKNOWN
     Route: 065
  10. AIMOVIG [Suspect]
     Active Substance: ERENUMAB-AOOE
     Indication: Migraine
     Dosage: UNK, DOSE FORM:SOLUTION ROUTE:UNKNOWN
     Route: 065
  11. MYCOPHENOLATE MOFETIL [Suspect]
     Active Substance: MYCOPHENOLATE MOFETIL
     Indication: Product used for unknown indication
     Dosage: UNK, ROUTE:UNKNOWN, CAPSULE
     Route: 065
  12. ERELZI [Suspect]
     Active Substance: ETANERCEPT-SZZS
     Indication: Rheumatoid arthritis
     Dosage: 50 MG, ROUTE:UNKNOWN
     Route: 065
  13. ERELZI [Suspect]
     Active Substance: ETANERCEPT-SZZS
     Dosage: 50 MG
     Route: 058
  14. ERELZI [Suspect]
     Active Substance: ETANERCEPT-SZZS
     Dosage: 50 MG, QW, 1 EVERY 1 WEEKS
     Route: 058
  15. ERELZI [Suspect]
     Active Substance: ETANERCEPT-SZZS
     Dosage: UNK, ROUTE:UNKNOWN
     Route: 065
  16. ERELZI [Suspect]
     Active Substance: ETANERCEPT-SZZS
     Dosage: UNK
     Route: 058
  17. ERELZI [Suspect]
     Active Substance: ETANERCEPT-SZZS
     Dosage: 50 MG, QW, 1 EVERY 1 WEEKS DOSE FORM:NOT SPECIFIED
     Route: 058
  18. RITUXIMAB [Suspect]
     Active Substance: RITUXIMAB
     Indication: Rheumatoid arthritis
     Dosage: UNK, DOSE FORM: UNKNOWN ROUTE: INTRAVENOUS BOLUS
     Route: 040
  19. RITUXIMAB [Suspect]
     Active Substance: RITUXIMAB
     Dosage: UNK, DOSE FORM: UNKNOWN ROUTE: INTRAVENOUS BOLUS
     Route: 040
  20. RITUXIMAB [Suspect]
     Active Substance: RITUXIMAB
     Dosage: UNK, DOSE FORM:UNKNOWN
     Route: 058
  21. RITUXIMAB [Suspect]
     Active Substance: RITUXIMAB
     Dosage: 350 MG, DOSE FORM:UNKNOWN ROUTE:UNKNOWN
     Route: 065
  22. RITUXIMAB [Suspect]
     Active Substance: RITUXIMAB
     Dosage: UNK, DOSE FORM:UNKNOWN ROUTE:UNKNOWN
     Route: 065
  23. RITUXIMAB [Suspect]
     Active Substance: RITUXIMAB
     Dosage: UNK, DOSE FORM:UNKNOWN ROUTE:UNKNOWN
     Route: 065
  24. RITUXIMAB [Suspect]
     Active Substance: RITUXIMAB
     Dosage: UNK, DOSE FORM:UNKNOWN ROUTE:UNKNOWN
     Route: 065
  25. RITUXIMAB [Suspect]
     Active Substance: RITUXIMAB
     Dosage: 350 MG, DOSE FORM:UNKNOWN ROUTE:UNKNOWN
     Route: 065
  26. RITUXIMAB [Suspect]
     Active Substance: RITUXIMAB
     Dosage: UNK, DOSE FORM:UNKNOWN
     Route: 058
  27. RITUXIMAB [Suspect]
     Active Substance: RITUXIMAB
     Dosage: UNK, ROUTE:INTRAVENOUS BOLUS
     Route: 040
  28. RITUXIMAB [Suspect]
     Active Substance: RITUXIMAB
     Dosage: UNK, DOSE FORM: UNKNOWN ROUTE: INTRAVENOUS BOLUS
     Route: 040
  29. RITUXIMAB [Suspect]
     Active Substance: RITUXIMAB
     Dosage: UNK, DOSE FORM: UNKNOWN ROUTE: INTRAVENOUS BOLUS
     Route: 040
  30. RITUXIMAB [Suspect]
     Active Substance: RITUXIMAB
     Dosage: UNK
     Route: 058
  31. RITUXIMAB [Suspect]
     Active Substance: RITUXIMAB
     Dosage: UNK, DOSE FORM:UNKNOWN
     Route: 065
  32. RITUXIMAB [Suspect]
     Active Substance: RITUXIMAB
     Dosage: UNK, DOSE FORM:UNKNOWN
     Route: 065
  33. RITUXIMAB [Suspect]
     Active Substance: RITUXIMAB
     Dosage: 350 MG
     Route: 065
  34. RITUXIMAB [Suspect]
     Active Substance: RITUXIMAB
     Dosage: UNK, DOSE FORM:UNKNOWN
     Route: 058
  35. COSENTYX [Suspect]
     Active Substance: SECUKINUMAB
     Indication: Psoriatic arthropathy
     Dosage: UNK, ROUTE:UNKNOWN
     Route: 065
  36. COSENTYX [Suspect]
     Active Substance: SECUKINUMAB
     Dosage: UNK
     Route: 065
  37. HYRIMOZ [Suspect]
     Active Substance: ADALIMUMAB-ADAZ
     Indication: Rheumatoid arthritis
     Dosage: 40 MG
     Route: 058
  38. HYRIMOZ [Suspect]
     Active Substance: ADALIMUMAB-ADAZ
     Dosage: UNK, ROUTE:UNKNOWN
     Route: 065
  39. HYRIMOZ [Suspect]
     Active Substance: ADALIMUMAB-ADAZ
     Dosage: 40 MG
     Route: 058
  40. HYRIMOZ [Suspect]
     Active Substance: ADALIMUMAB-ADAZ
     Dosage: 40 MG
     Route: 048
  41. HYRIMOZ [Suspect]
     Active Substance: ADALIMUMAB-ADAZ
     Dosage: 40 MG
     Route: 058
  42. HYRIMOZ [Suspect]
     Active Substance: ADALIMUMAB-ADAZ
     Dosage: 40 MG, DOSE FORM: SOLUTION SUBCUTANEOUS
     Route: 058
  43. ALENDRONATE SODIUM [Suspect]
     Active Substance: ALENDRONATE SODIUM
     Indication: Rheumatoid arthritis
     Dosage: UNK
     Route: 048
  44. LEFLUNOMIDE [Suspect]
     Active Substance: LEFLUNOMIDE
     Indication: Rheumatoid arthritis
     Dosage: 20 MG, QD, 1 EVERY 1 DAYS DOSE FORM:UNKNOWN ROUTE:UNKNOWN
     Route: 065
  45. LEFLUNOMIDE [Suspect]
     Active Substance: LEFLUNOMIDE
     Dosage: UNK, DOSE FORM:UNKNOWN ROUTE:UNKNOWN
     Route: 065
  46. LEFLUNOMIDE [Suspect]
     Active Substance: LEFLUNOMIDE
     Dosage: 20 MG, DOSE FORM:UNKNOWN
     Route: 048
  47. LEFLUNOMIDE [Suspect]
     Active Substance: LEFLUNOMIDE
     Dosage: 20 MG, DOSE FORM:UNKNOWN
     Route: 048
  48. LEFLUNOMIDE [Suspect]
     Active Substance: LEFLUNOMIDE
     Dosage: 10 MG, QD, 1 EVERY 1 DAYS DOSE FORM:UNKNOWN ROUTE:UNKNOWN
     Route: 065
  49. LEFLUNOMIDE [Suspect]
     Active Substance: LEFLUNOMIDE
     Dosage: 20 MG, DOSE FORM:UNKNOWN
     Route: 048
  50. LEFLUNOMIDE [Suspect]
     Active Substance: LEFLUNOMIDE
     Dosage: 10 MG, QD, 1 EVERY 1 DAYS DOSE FORM: UNKNOWN ROUTE:UNKNOWN
     Route: 065
  51. LEFLUNOMIDE [Suspect]
     Active Substance: LEFLUNOMIDE
     Dosage: 20 MG, FORMULATION: TABLET
     Route: 048
  52. ERENUMAB [Suspect]
     Active Substance: ERENUMAB
     Indication: Migraine
     Dosage: UNK, ROUTE:UNKNOWN
     Route: 065
  53. PANTOPRAZOLE [Suspect]
     Active Substance: PANTOPRAZOLE
     Indication: Product used for unknown indication
     Dosage: UNK, DOSE FORM:TABLET (DELAYED- RELEASE) ROUTE: INTRACARDIAC
     Route: 016
  54. METHOTREXATE [Suspect]
     Active Substance: METHOTREXATE
     Indication: Rheumatoid arthritis
     Dosage: 25 MG, DOSE FORM:UNKNOWN ROUTE:INTRA-ARTERIAL
     Route: 013
  55. METHOTREXATE [Suspect]
     Active Substance: METHOTREXATE
     Dosage: 25 MG, DOSE FORM:UNKNOWN ROUTE:INTRA-ARTERIAL
     Route: 013
  56. METHOTREXATE [Suspect]
     Active Substance: METHOTREXATE
     Dosage: 25 MG, DOSE FORM:UNKNOWN ROUTE:INTRA-ARTERIAL
     Route: 013
  57. METHOTREXATE [Suspect]
     Active Substance: METHOTREXATE
     Dosage: 20 MG, QD, 1 EVERY 1 DAYS DOSE FORM:UNKNOWN
     Route: 048
  58. METHOTREXATE [Suspect]
     Active Substance: METHOTREXATE
     Dosage: 20 MG, QD, 1 EVERY 1 DAYS DOSE FORM :UNKNOWN ROUTE: UNKNOWN
     Route: 065
  59. METHOTREXATE [Suspect]
     Active Substance: METHOTREXATE
     Dosage: 25 MG, DOSE FORM:UNKNOWN
     Route: 048
  60. METHOTREXATE [Suspect]
     Active Substance: METHOTREXATE
     Dosage: 1 G, 1 EVERY 1 DAYS DOSE FORM: UNKNOWN
     Route: 048
  61. METHOTREXATE [Suspect]
     Active Substance: METHOTREXATE
     Dosage: 20 MG, QD, 1 EVERY 1 DAYS DOSE FORM:UNKNOWN
     Route: 048
  62. METHOTREXATE [Suspect]
     Active Substance: METHOTREXATE
     Dosage: 25 MG, 1 EVERY 1 DAYS DOSE FORM:UNKNOWN ROUTE:UNKNOWN
     Route: 065
  63. METHOTREXATE [Suspect]
     Active Substance: METHOTREXATE
     Dosage: 20 MG, DOSE FORM:UNKNOWN
     Route: 048
  64. METHOTREXATE [Suspect]
     Active Substance: METHOTREXATE
     Dosage: 15 MG, DOSE FORM:UNKNOWN
     Route: 048
  65. METHOTREXATE [Suspect]
     Active Substance: METHOTREXATE
     Dosage: 20 MG, QD, 1 EVERY 1 DAYS DOSE FORM:UNKNOWN
     Route: 048
  66. METHOTREXATE [Suspect]
     Active Substance: METHOTREXATE
     Dosage: 25 MG, QD, 1 EVERY 1 DAYS DOSE FORM:UNKNOWN
     Route: 048
  67. METHOTREXATE [Suspect]
     Active Substance: METHOTREXATE
     Dosage: 15 MG, QD, 1 EVERY 1 DAYS DOSE FORM:UNKNOWN
     Route: 048
  68. METHOTREXATE [Suspect]
     Active Substance: METHOTREXATE
     Dosage: 25 MG, DOSE FORM: UNKNOWN ROUTE: INTRA-ARTERIAL
     Route: 013
  69. METHOTREXATE [Suspect]
     Active Substance: METHOTREXATE
     Dosage: 20 MG, QD, 1 EVERY 1 DAYS DOSE FORM:UNKNOWN ROUTE:UNKNOWN
     Route: 065
  70. METHOTREXATE [Suspect]
     Active Substance: METHOTREXATE
     Dosage: 20 MG, QD, 1 EVERY 1 DAYS DOSE FORM:UNKNOWN ROUTE:UNKNOWN
     Route: 065
  71. METHOTREXATE [Suspect]
     Active Substance: METHOTREXATE
     Dosage: 20 MG, QD, 1 EVERY 1 DAYS DOSE FORM:UNKNOWN ROUTE:UNKNOWN
     Route: 065
  72. METHOTREXATE [Suspect]
     Active Substance: METHOTREXATE
     Dosage: UNK, QD
     Route: 065
  73. METHOTREXATE [Suspect]
     Active Substance: METHOTREXATE
     Dosage: 2 G, 1 EVERY 1 DAYS DOSE FORM:UNKNOWN ROUTE:UNKNOWN
     Route: 065
  74. METHOTREXATE [Suspect]
     Active Substance: METHOTREXATE
     Dosage: 2 DOSAGE FORM, DOSE FORM:UNKNOWN ROUTE:UNKNOWN
     Route: 065
  75. METHOTREXATE [Suspect]
     Active Substance: METHOTREXATE
     Dosage: UNK, DOSE FORM:UNKNOWN
     Route: 058
  76. METHOTREXATE [Suspect]
     Active Substance: METHOTREXATE
     Dosage: 2 G, QD, 1 EVERY 1 DAYS DOSE FORM:UNKNOWN
     Route: 048
  77. METHOTREXATE [Suspect]
     Active Substance: METHOTREXATE
     Dosage: 25 MG, DOSE FORM:UNKNOWN
     Route: 058
  78. METHOTREXATE [Suspect]
     Active Substance: METHOTREXATE
     Dosage: 25 MG, QD, 1 EVERY 1 DAYS DOSE FORM:UNKNOWN
     Route: 048
  79. METHOTREXATE [Suspect]
     Active Substance: METHOTREXATE
     Dosage: 40 MG, QD, 1 EVERY 1 DAYS DOSE FORM:UNKNOWN ROUTE:UNKNOWN
     Route: 065
  80. METHOTREXATE [Suspect]
     Active Substance: METHOTREXATE
     Dosage: 50 MG, QD, 1 EVERY 1 DAYS DOSE FORM:UNKNOWN
     Route: 048
  81. METHOTREXATE [Suspect]
     Active Substance: METHOTREXATE
     Dosage: 20 MG, DOSE FORM:UNKNOWN ROUTE:UNKNOWN
     Route: 065
  82. METHOTREXATE [Suspect]
     Active Substance: METHOTREXATE
     Dosage: 2 G, QD, 1 EVERY 1 DAYS DOSE FORM:UNKNOWN ROUTE:UNKNOWN
     Route: 065
  83. METHOTREXATE [Suspect]
     Active Substance: METHOTREXATE
     Dosage: 25 MG, QD, 1 EVERY 1 DAYS DOSE FORM:UNKNOWN
     Route: 048
  84. METHOTREXATE [Suspect]
     Active Substance: METHOTREXATE
     Dosage: 25 MG, QD, 1 EVERY 1 DAYS DOSE FORM:UNKNOWN
     Route: 048
  85. METHOTREXATE [Suspect]
     Active Substance: METHOTREXATE
     Dosage: 25 MG, DOSE FORM:UNKNOWN
     Route: 013
  86. METHOTREXATE [Suspect]
     Active Substance: METHOTREXATE
     Dosage: 25 MG, QD, 1 EVERY 1 DAYS DOSE FORM: UNKNOWN ROUTE: UNKNOWN
     Route: 065
  87. METHOTREXATE [Suspect]
     Active Substance: METHOTREXATE
     Dosage: 1 G, DOSE FORM:UNKNOWN
     Route: 048
  88. METHOTREXATE [Suspect]
     Active Substance: METHOTREXATE
     Dosage: 1 G, QD, 1 EVERY 1 DAYS DOSE FORM:UNKNOWN ROUTE:ORAL
     Route: 048
  89. METHOTREXATE [Suspect]
     Active Substance: METHOTREXATE
     Dosage: 1 G, DOSE FORM:UNKNOWN
     Route: 048
  90. METHOTREXATE [Suspect]
     Active Substance: METHOTREXATE
     Dosage: 200 MG, DOSE FORM:UNKNOWN
     Route: 048
  91. METHOTREXATE [Suspect]
     Active Substance: METHOTREXATE
     Dosage: 20 MG, DOSE FORM:UNKNOWN ROUTE:INTRA-ARTERIAL
     Route: 013
  92. METHOTREXATE [Suspect]
     Active Substance: METHOTREXATE
     Dosage: 25 MG, 25 MG, DOSE FORM: SOLUTION INTRA- ARTERIAL
     Route: 058
  93. METHOTREXATE [Suspect]
     Active Substance: METHOTREXATE
     Dosage: 25 MG, DOSE FORM:UNKNOWN ROUTE:INTRA-ARTERIAL
     Route: 058
  94. ACETAMINOPHEN [Suspect]
     Active Substance: ACETAMINOPHEN
     Indication: Product used for unknown indication
     Dosage: 10 MG, DOSE FORM: NOT SPECIFIED, ROUTE: UNKNOWN
     Route: 065
  95. ACETAMINOPHEN AND CODEINE [Suspect]
     Active Substance: ACETAMINOPHEN\CODEINE PHOSPHATE
     Indication: Product used for unknown indication
     Dosage: 20 MG, ROUTE:UNKNOWN
     Route: 065
  96. ACETAMINOPHEN AND CODEINE [Suspect]
     Active Substance: ACETAMINOPHEN\CODEINE PHOSPHATE
     Dosage: UNK, (UNK ROUTE, FORMULATION-UNKNOWN)
     Route: 065
  97. CETIRIZINE [Suspect]
     Active Substance: CETIRIZINE HYDROCHLORIDE
     Indication: Rheumatoid arthritis
     Dosage: 25 MG, DOSE FORM:UNKNOWN
     Route: 048
  98. CETIRIZINE [Suspect]
     Active Substance: CETIRIZINE HYDROCHLORIDE
     Indication: Off label use
     Dosage: 25 MG, DOSE FORM: UNKNOWN, ROUTE:UNKNOWN
     Route: 065
  99. CETIRIZINE [Suspect]
     Active Substance: CETIRIZINE HYDROCHLORIDE
     Dosage: UNK, DOSE FORM:UNKNOWN ROUTE:INTRACARDIAC
     Route: 016
  100. CETIRIZINE [Suspect]
     Active Substance: CETIRIZINE HYDROCHLORIDE
     Dosage: 25 MG, DOSE FORM:UNKNOWN
     Route: 048
  101. CETIRIZINE [Suspect]
     Active Substance: CETIRIZINE HYDROCHLORIDE
     Dosage: 25 MG, QD, 1 EVERY 1 DAYS DOSE FORM:UNKNOWN ROUTE:UNKNOWN
     Route: 065
  102. CETIRIZINE [Suspect]
     Active Substance: CETIRIZINE HYDROCHLORIDE
     Dosage: 10 MG, QD, 1 EVERY 1 DAYS DOSE FORM:UNKNOWN
     Route: 048
  103. CETIRIZINE [Suspect]
     Active Substance: CETIRIZINE HYDROCHLORIDE
     Dosage: 10 MG, DOSE FORM:UNKNOWN
     Route: 048
  104. CETIRIZINE [Suspect]
     Active Substance: CETIRIZINE HYDROCHLORIDE
     Dosage: 10 MG
     Route: 048
  105. CORTISONE [Suspect]
     Active Substance: CORTISONE
     Indication: Rheumatoid arthritis
     Dosage: UNK
     Route: 048
  106. CORTISONE [Suspect]
     Active Substance: CORTISONE
     Dosage: UNK, ROUTE:CUTANEOUS
     Route: 003
  107. CORTISONE [Suspect]
     Active Substance: CORTISONE
     Dosage: UNK
     Route: 058
  108. CORTISONE [Suspect]
     Active Substance: CORTISONE
     Dosage: UNK, DOSE FORM:NOT SPECIFIED ROUTE:UNKNOWN
     Route: 065
  109. CORTISONE [Suspect]
     Active Substance: CORTISONE
     Dosage: UNK
     Route: 058
  110. CORTISONE [Suspect]
     Active Substance: CORTISONE
     Dosage: 25 MG, ROUTE:UNKNOWN
     Route: 065
  111. GOLD [Suspect]
     Active Substance: GOLD
     Indication: Product used for unknown indication
     Dosage: UNK, ROUTE:UNKNOWN
     Route: 065
  112. NAPROXEN [Suspect]
     Active Substance: NAPROXEN
     Indication: Product used for unknown indication
     Dosage: 100 MG, DOSE FORM:TABLET (ENTERIC-COATED) ROUTE:UNKNOWN
     Route: 065
  113. ENBREL [Suspect]
     Active Substance: ETANERCEPT
     Indication: Rheumatoid arthritis
     Dosage: 90 MG
     Route: 058
  114. ENBREL [Suspect]
     Active Substance: ETANERCEPT
     Indication: Psoriatic arthropathy
     Dosage: UNK
     Route: 065
  115. ENBREL [Suspect]
     Active Substance: ETANERCEPT
     Dosage: UNK
     Route: 058
  116. ENBREL [Suspect]
     Active Substance: ETANERCEPT
     Dosage: 20 MG, QW, 1 EVERY 1 WEEKS
     Route: 058
  117. ENBREL [Suspect]
     Active Substance: ETANERCEPT
     Dosage: UNK
     Route: 058
  118. ENBREL [Suspect]
     Active Substance: ETANERCEPT
     Dosage: UNK
     Route: 058
  119. ENBREL [Suspect]
     Active Substance: ETANERCEPT
     Dosage: 50 MG, QW, 1 EVERY 1 WEEKS
     Route: 058
  120. ENBREL [Suspect]
     Active Substance: ETANERCEPT
     Dosage: 50 MG, QW, 1 EVERY 1 WEEKS
     Route: 058
  121. ENBREL [Suspect]
     Active Substance: ETANERCEPT
     Dosage: 20 MG, QD
     Route: 058
  122. ENBREL [Suspect]
     Active Substance: ETANERCEPT
     Dosage: 50 MG
     Route: 058
  123. ENBREL [Suspect]
     Active Substance: ETANERCEPT
     Dosage: 25 MG, QD, 1 EVERY 1 DAYS
     Route: 048
  124. ENBREL [Suspect]
     Active Substance: ETANERCEPT
     Dosage: 25 MG, QD, 25MG 1 EVERY 1 DAYS ROUTE:ORAL,
     Route: 048
  125. ENBREL [Suspect]
     Active Substance: ETANERCEPT
     Dosage: 50 MG, QD, 1 EVERY 1 DAYS
     Route: 058
  126. ENBREL [Suspect]
     Active Substance: ETANERCEPT
     Dosage: 50 MG, QW, ROUTE:UNKNOWN 1 EVERY 1 WEEKS
     Route: 065
  127. ENBREL [Suspect]
     Active Substance: ETANERCEPT
     Dosage: UNK, ROUTE:UNKNOWN
     Route: 065
  128. ENBREL [Suspect]
     Active Substance: ETANERCEPT
     Dosage: 20 MG
     Route: 058
  129. ENBREL [Suspect]
     Active Substance: ETANERCEPT
     Dosage: 40 MG
     Route: 058
  130. ENBREL [Suspect]
     Active Substance: ETANERCEPT
     Dosage: 25 MG
     Route: 058
  131. ENBREL [Suspect]
     Active Substance: ETANERCEPT
     Dosage: 20 MG
     Route: 058
  132. ENBREL [Suspect]
     Active Substance: ETANERCEPT
     Dosage: 1 DOSAGE FORM, QW, ROUTE:UNKNOWN
     Route: 065
  133. TOPAMAX [Suspect]
     Active Substance: TOPIRAMATE
     Indication: Migraine
     Dosage: 3 MG, QD, 1 EVERY 1 DAYS DOSE FORM:NOT SPECIFIED ROUTE:UNKNOWN
     Route: 065
  134. VITAMIN C [Suspect]
     Active Substance: ASCORBIC ACID
     Indication: Product used for unknown indication
     Dosage: 1000 MG, ROUTE:UNKNOWN
     Route: 065
  135. VITAMIN C [Suspect]
     Active Substance: ASCORBIC ACID
     Dosage: 1000 MG, ROUTE:UNKNOWN
     Route: 065
  136. VITAMIN C [Suspect]
     Active Substance: ASCORBIC ACID
     Dosage: 1000 MG, ROUTE:UNKNOWN
     Route: 065

REACTIONS (54)
  - Type 2 diabetes mellitus [Fatal]
  - Migraine [Fatal]
  - Rheumatic fever [Fatal]
  - Headache [Fatal]
  - Product quality issue [Fatal]
  - Hypersensitivity [Fatal]
  - Gastrointestinal disorder [Fatal]
  - Psoriasis [Fatal]
  - Myositis [Fatal]
  - Sleep disorder due to a general medical condition [Fatal]
  - Pain in extremity [Fatal]
  - Pruritus [Fatal]
  - Stomatitis [Fatal]
  - Ill-defined disorder [Fatal]
  - Paraesthesia [Fatal]
  - Osteoarthritis [Fatal]
  - Pain [Fatal]
  - Oedema peripheral [Fatal]
  - Weight decreased [Fatal]
  - Sinusitis [Fatal]
  - Rash [Fatal]
  - Nail disorder [Fatal]
  - Sleep disorder [Fatal]
  - Pustular psoriasis [Fatal]
  - X-ray abnormal [Fatal]
  - Wound infection [Fatal]
  - Weight increased [Fatal]
  - C-reactive protein increased [Fatal]
  - Vomiting [Fatal]
  - Swollen joint count increased [Fatal]
  - Subcutaneous drug absorption impaired [Fatal]
  - Wheezing [Fatal]
  - Muscle injury [Fatal]
  - Muscle spasms [Fatal]
  - Mobility decreased [Fatal]
  - Musculoskeletal stiffness [Fatal]
  - Psoriatic arthropathy [Fatal]
  - Peripheral swelling [Fatal]
  - Taste disorder [Fatal]
  - Intentional product use issue [Fatal]
  - Rash vesicular [Fatal]
  - Urticaria [Fatal]
  - Pneumonia [Fatal]
  - Gait disturbance [Fatal]
  - Pericarditis [Fatal]
  - Night sweats [Fatal]
  - Obesity [Fatal]
  - Grip strength decreased [Fatal]
  - General symptom [Fatal]
  - Peripheral venous disease [Fatal]
  - Pyrexia [Fatal]
  - Nasopharyngitis [Fatal]
  - Product use in unapproved indication [Fatal]
  - Swelling [Fatal]
